FAERS Safety Report 7969511-6 (Version None)
Quarter: 2011Q4

REPORT INFORMATION
  Report Type: 
  Country: None (occurrence: None)
  Receive Date: 20111212
  Receipt Date: 20111206
  Transmission Date: 20120403
  Serious: No
  Sender: FDA-Public Use
  Company Number: US-BIOGENIDEC-2011BI046287

PATIENT
  Age: 59 Year
  Sex: Female

DRUGS (1)
  1. AVONEX [Suspect]
     Indication: MULTIPLE SCLEROSIS
     Route: 030
     Dates: start: 20080808

REACTIONS (5)
  - STRESS [None]
  - URINARY TRACT INFECTION [None]
  - DECREASED IMMUNE RESPONSIVENESS [None]
  - FALL [None]
  - LOSS OF CONSCIOUSNESS [None]
